FAERS Safety Report 23404321 (Version 4)
Quarter: 2024Q1

REPORT INFORMATION
  Report Type: Spontaneous
  Country: PL (occurrence: PL)
  Receive Date: 20240116
  Receipt Date: 20240312
  Transmission Date: 20240410
  Serious: Yes (Other)
  Sender: FDA-Public Use
  Company Number: PL-ROCHE-3194136

PATIENT
  Age: 64 Year
  Sex: Female
  Weight: 65 kg

DRUGS (35)
  1. ATEZOLIZUMAB [Suspect]
     Active Substance: ATEZOLIZUMAB
     Indication: Small cell lung cancer extensive stage
     Dosage: 1200 MG, Q3W (ON 09 AUG 2022, PATIENT HAD MOST RECENT DOSE OF STUDY DRUG PRIOR TO AE)
     Route: 065
     Dates: start: 20220209
  2. CARBOPLATIN [Suspect]
     Active Substance: CARBOPLATIN
     Indication: Small cell lung cancer extensive stage
     Dosage: 500 MG
     Route: 042
     Dates: start: 20220209
  3. ETOPOSIDE [Suspect]
     Active Substance: ETOPOSIDE
     Indication: Small cell lung cancer extensive stage
     Dosage: 165 MG
     Route: 042
     Dates: start: 20220209
  4. Aciprex [Concomitant]
     Indication: Product used for unknown indication
     Dosage: UNK, QD
     Route: 065
     Dates: start: 20220212
  5. CLEMASTINE FUMARATE [Concomitant]
     Active Substance: CLEMASTINE FUMARATE
     Indication: Product used for unknown indication
     Dosage: UNK
     Route: 065
     Dates: start: 20220413, end: 20220413
  6. ENOXAPARIN [Concomitant]
     Active Substance: ENOXAPARIN
     Indication: Product used for unknown indication
     Dosage: UNK UNK, QD
     Route: 065
     Dates: start: 20220119
  7. FILGRASTIM [Concomitant]
     Active Substance: FILGRASTIM
     Indication: Product used for unknown indication
     Dosage: SUBSEQUENT DOSE DATES: 04-MAR-2022/08-MAR-2022 , 26-MAR-2022/30-MAR-202216-APR-2022/20-APR-2022
     Route: 065
     Dates: start: 20220212, end: 20220216
  8. ESOMEPRAZOLE MAGNESIUM [Concomitant]
     Active Substance: ESOMEPRAZOLE\ESOMEPRAZOLE MAGNESIUM\ESOMEPRAZOLE MAGNESIUM DIHYDRATE
     Indication: Product used for unknown indication
     Dosage: UNK
     Route: 065
  9. METAMIZOL [Concomitant]
     Active Substance: METAMIZOLE SODIUM
     Indication: Product used for unknown indication
     Dosage: UNK
     Route: 065
     Dates: start: 20220324, end: 20220324
  10. SODIUM CHLORIDE [Concomitant]
     Active Substance: SODIUM CHLORIDE
     Dosage: QD
     Route: 065
     Dates: start: 20220323, end: 20220325
  11. SODIUM CHLORIDE [Concomitant]
     Active Substance: SODIUM CHLORIDE
     Dosage: QD
     Route: 065
     Dates: start: 20220323, end: 20220325
  12. SODIUM CHLORIDE [Concomitant]
     Active Substance: SODIUM CHLORIDE
     Dosage: QD
     Route: 065
     Dates: start: 20220323, end: 20220325
  13. SODIUM CHLORIDE [Concomitant]
     Active Substance: SODIUM CHLORIDE
     Dosage: QD
     Route: 065
     Dates: start: 20220323, end: 20220325
  14. SODIUM CHLORIDE [Concomitant]
     Active Substance: SODIUM CHLORIDE
     Dosage: QD
     Route: 065
     Dates: start: 20220323, end: 20220325
  15. SODIUM CHLORIDE [Concomitant]
     Active Substance: SODIUM CHLORIDE
     Dosage: QD
     Route: 065
     Dates: start: 20220413, end: 20220415
  16. SODIUM CHLORIDE [Concomitant]
     Active Substance: SODIUM CHLORIDE
     Dosage: QD
     Route: 065
     Dates: start: 20220413, end: 20220415
  17. SODIUM CHLORIDE [Concomitant]
     Active Substance: SODIUM CHLORIDE
     Dosage: QD
     Route: 065
     Dates: start: 20220413, end: 20220415
  18. SODIUM CHLORIDE [Concomitant]
     Active Substance: SODIUM CHLORIDE
     Dosage: QD
     Route: 065
     Dates: start: 20220413, end: 20220415
  19. SODIUM CHLORIDE [Concomitant]
     Active Substance: SODIUM CHLORIDE
     Dosage: QD
     Route: 065
     Dates: start: 20220413, end: 20220415
  20. SODIUM CHLORIDE [Concomitant]
     Active Substance: SODIUM CHLORIDE
     Indication: Product used for unknown indication
     Dosage: UNK
     Route: 065
     Dates: start: 20220323, end: 20220325
  21. OMEPRAZOLE [Concomitant]
     Active Substance: OMEPRAZOLE
     Dosage: QD
     Route: 065
     Dates: start: 20220323, end: 20220325
  22. OMEPRAZOLE [Concomitant]
     Active Substance: OMEPRAZOLE
     Dosage: QD
     Route: 065
     Dates: start: 20220323, end: 20220325
  23. OMEPRAZOLE [Concomitant]
     Active Substance: OMEPRAZOLE
     Dosage: QD
     Route: 065
     Dates: start: 20220323, end: 20220325
  24. OMEPRAZOLE [Concomitant]
     Active Substance: OMEPRAZOLE
     Dosage: QD
     Route: 065
     Dates: start: 20220323, end: 20220325
  25. OMEPRAZOLE [Concomitant]
     Active Substance: OMEPRAZOLE
     Dosage: QD
     Route: 065
     Dates: start: 20220323, end: 20220325
  26. OMEPRAZOLE [Concomitant]
     Active Substance: OMEPRAZOLE
     Dosage: QD
     Route: 065
     Dates: start: 20220413, end: 20220415
  27. OMEPRAZOLE [Concomitant]
     Active Substance: OMEPRAZOLE
     Dosage: QD
     Route: 065
     Dates: start: 20220413, end: 20220415
  28. OMEPRAZOLE [Concomitant]
     Active Substance: OMEPRAZOLE
     Dosage: QD
     Route: 065
     Dates: start: 20220413, end: 20220415
  29. OMEPRAZOLE [Concomitant]
     Active Substance: OMEPRAZOLE
     Dosage: QD
     Route: 065
     Dates: start: 20220413, end: 20220415
  30. OMEPRAZOLE [Concomitant]
     Active Substance: OMEPRAZOLE
     Dosage: QD
     Route: 065
     Dates: start: 20220413, end: 20220415
  31. OMEPRAZOLE [Concomitant]
     Active Substance: OMEPRAZOLE
     Indication: Product used for unknown indication
     Dosage: UNK
     Route: 065
     Dates: start: 20220413, end: 20220415
  32. ONDANSETRON [Concomitant]
     Active Substance: ONDANSETRON
     Indication: Product used for unknown indication
     Dosage: UNK, QD
     Route: 065
     Dates: start: 20220323, end: 20220325
  33. CALCIUM CHLORIDE\MAGNESIUM CHLORIDE\POTASSIUM CHLORIDE\SODIUM ACETATE\ [Concomitant]
     Active Substance: CALCIUM CHLORIDE\MAGNESIUM CHLORIDE\POTASSIUM CHLORIDE\SODIUM ACETATE\SODIUM CHLORIDE\SODIUM CITRATE
     Indication: Product used for unknown indication
     Dosage: UNK, QD
     Route: 065
     Dates: start: 20220413, end: 20220415
  34. ACETAMINOPHEN [Concomitant]
     Active Substance: ACETAMINOPHEN
     Indication: Product used for unknown indication
     Dosage: UNK
     Route: 065
     Dates: start: 20220323, end: 20220325
  35. TEMAZEPAM [Concomitant]
     Active Substance: TEMAZEPAM
     Indication: Product used for unknown indication
     Dosage: UNK
     Route: 065

REACTIONS (4)
  - Panniculitis [Recovered/Resolved]
  - Pneumonitis [Recovered/Resolved]
  - Gastrointestinal pain [Recovered/Resolved]
  - Headache [Recovered/Resolved]

NARRATIVE: CASE EVENT DATE: 20220306
